FAERS Safety Report 8303647-5 (Version None)
Quarter: 2012Q1

REPORT INFORMATION
  Report Type: 
  Country: None (occurrence: None)
  Receive Date: 20120326
  Receipt Date: 20111121
  Transmission Date: 20120608
  Serious: Yes (Other)
  Sender: FDA-Public Use
  Company Number: PHEH2011US03511

PATIENT
  Age: 74 Year
  Sex: Male
  Weight: 104.3 kg

DRUGS (1)
  1. TASIGNA [Suspect]
     Indication: CHRONIC MYELOID LEUKAEMIA
     Dosage: 150 MG, BID, ORAL
     Route: 048
     Dates: start: 20100825

REACTIONS (4)
  - ARTHRALGIA [None]
  - NEUTROPENIA [None]
  - HEADACHE [None]
  - WEIGHT DECREASED [None]
